FAERS Safety Report 21798543 (Version 1)
Quarter: 2022Q4

REPORT INFORMATION
  Report Type: Spontaneous
  Country: ES (occurrence: ES)
  Receive Date: 20221230
  Receipt Date: 20221230
  Transmission Date: 20230112
  Serious: Yes (Other)
  Sender: FDA-Public Use
  Company Number: ES-drreddys-LIT/SPN/22/0158305

PATIENT
  Age: 64 Year
  Sex: Male

DRUGS (2)
  1. ENTECAVIR [Suspect]
     Active Substance: ENTECAVIR
     Indication: Hepatic cirrhosis
     Dosage: 0.5 MILLIGRAM, ONCE A DAY
     Route: 065
  2. ENTECAVIR [Suspect]
     Active Substance: ENTECAVIR
     Indication: Hepatitis B

REACTIONS (2)
  - Fistula [Unknown]
  - Hepatocellular carcinoma [Unknown]

NARRATIVE: CASE EVENT DATE: 20160101
